FAERS Safety Report 6875171-8 (Version None)
Quarter: 2010Q3

REPORT INFORMATION
  Report Type: 
  Country: None (occurrence: None)
  Receive Date: 20100727
  Receipt Date: 20100716
  Transmission Date: 20110219
  Serious: Yes (Hospitalization)
  Sender: FDA-Public Use
  Company Number: AU-PURDUE-USA-2010-0044895

PATIENT
  Sex: Male

DRUGS (4)
  1. BLINDED BTDS PATCH [Suspect]
     Indication: DIABETIC NEUROPATHY
     Dosage: 10 MCG, Q1H
     Route: 062
     Dates: start: 20100725
  2. BLINDED PLACEBO TRANSDERMAL PATCH [Suspect]
     Indication: DIABETIC NEUROPATHY
     Dosage: 10 MCG, Q1H
     Route: 062
     Dates: start: 20100725
  3. NOVOMIX                            /01758401/ [Concomitant]
  4. METFORMIN HCL [Concomitant]

REACTIONS (1)
  - DIABETIC FOOT [None]
